FAERS Safety Report 10098843 (Version 2)
Quarter: 2014Q2

REPORT INFORMATION
  Report Type: Spontaneous
  Country: US (occurrence: US)
  Receive Date: 20140423
  Receipt Date: 20140605
  Transmission Date: 20141212
  Serious: Yes (Hospitalization)
  Sender: FDA-Public Use
  Company Number: US-BRISTOL-MYERS SQUIBB COMPANY-20647392

PATIENT
  Age: 15 Year
  Sex: Female

DRUGS (2)
  1. ABILIFY [Suspect]
     Route: 048
     Dates: start: 201403
  2. ABILIFY MAINTENA INJECTION [Suspect]
     Indication: PSYCHOTIC DISORDER
     Route: 030
     Dates: start: 20140401

REACTIONS (1)
  - Psychotic disorder [Recovering/Resolving]
